FAERS Safety Report 19651432 (Version 4)
Quarter: 2021Q4

REPORT INFORMATION
  Report Type: Spontaneous
  Country: US (occurrence: US)
  Receive Date: 20210803
  Receipt Date: 20211203
  Transmission Date: 20220303
  Serious: Yes (Other)
  Sender: FDA-Public Use
  Company Number: US-GSKCCFUS-CASE-01120558_AE-65979

PATIENT
  Sex: Male

DRUGS (1)
  1. FLOVENT HFA [Suspect]
     Active Substance: FLUTICASONE PROPIONATE
     Indication: Eosinophilic oesophagitis
     Dosage: 1 PUFF(S), BID
     Route: 055
     Dates: start: 202107

REACTIONS (5)
  - Oesophageal stenosis [Unknown]
  - Oesophageal food impaction [Unknown]
  - Treatment noncompliance [Unknown]
  - Product label confusion [Unknown]
  - Product use in unapproved indication [Unknown]
